FAERS Safety Report 24773465 (Version 2)
Quarter: 2024Q4

REPORT INFORMATION
  Report Type: Report from Study
  Country: JP (occurrence: JP)
  Receive Date: 20241225
  Receipt Date: 20241231
  Transmission Date: 20250115
  Serious: Yes (Other)
  Sender: ROCHE
  Company Number: JP-CHUGAI-2024043939

PATIENT
  Age: 51 Year
  Sex: Female
  Weight: 57.3 kg

DRUGS (5)
  1. TECENTRIQ [Suspect]
     Active Substance: ATEZOLIZUMAB
     Indication: Triple negative breast cancer
     Route: 042
     Dates: start: 20221121
  2. PACLITAXEL [Suspect]
     Active Substance: PACLITAXEL
     Indication: Triple negative breast cancer
     Dosage: 100 MILLIGRAM/SQ. METER
     Route: 042
     Dates: start: 20221121, end: 20230511
  3. PACLITAXEL [Suspect]
     Active Substance: PACLITAXEL
     Dosage: 80 UNK
     Route: 042
     Dates: start: 20230608, end: 20231109
  4. PACLITAXEL [Suspect]
     Active Substance: PACLITAXEL
     Dosage: 64 UNK
     Route: 042
     Dates: start: 20240328
  5. PACLITAXEL [Suspect]
     Active Substance: PACLITAXEL
     Dosage: 100 MILLIGRAM/SQ. METER
     Route: 042
     Dates: start: 20231207, end: 20240229

REACTIONS (2)
  - Neutropenia [Not Recovered/Not Resolved]
  - Neuropathy peripheral [Not Recovered/Not Resolved]

NARRATIVE: CASE EVENT DATE: 20230427
